FAERS Safety Report 9932546 (Version 1)
Quarter: 2014Q1

REPORT INFORMATION
  Report Type: Spontaneous
  Country: US (occurrence: US)
  Receive Date: 20140228
  Receipt Date: 20140228
  Transmission Date: 20141002
  Serious: No
  Sender: FDA-Public Use
  Company Number: US-GLAXOSMITHKLINE-A1020250A

PATIENT
  Age: 31 Year
  Sex: Female

DRUGS (1)
  1. LAMICTAL [Suspect]
     Indication: PRODUCT USED FOR UNKNOWN INDICATION
     Dosage: 4TAB PER DAY
     Route: 065
     Dates: start: 20081228

REACTIONS (2)
  - Incorrect dose administered [Unknown]
  - Exposure during pregnancy [Unknown]
